FAERS Safety Report 16773302 (Version 1)
Quarter: 2019Q3

REPORT INFORMATION
  Report Type: Spontaneous
  Country: CN (occurrence: CN)
  Receive Date: 20190904
  Receipt Date: 20190904
  Transmission Date: 20191005
  Serious: Yes (Hospitalization, Other)
  Sender: FDA-Public Use
  Company Number: CN-TAKEDA-2019TUS050593

PATIENT
  Age: 64 Year
  Sex: Male
  Weight: 65 kg

DRUGS (3)
  1. DEXAMETHASONE SODIUM PHOSPHATE. [Suspect]
     Active Substance: DEXAMETHASONE SODIUM PHOSPHATE
     Indication: PLASMA CELL MYELOMA
     Dosage: 20 MILLIGRAM, UNK
     Route: 041
     Dates: start: 20190717, end: 20190801
  2. NINLARO [Suspect]
     Active Substance: IXAZOMIB CITRATE
     Indication: PLASMA CELL MYELOMA
     Dosage: 4 MILLIGRAM, 1/WEEK
     Route: 048
     Dates: start: 20190717, end: 20190731
  3. SODIUM CHLORIDE. [Concomitant]
     Active Substance: SODIUM CHLORIDE
     Dosage: 100 MILLILITER, UNK
     Route: 041
     Dates: start: 20190717, end: 20190801

REACTIONS (2)
  - White blood cell count decreased [Unknown]
  - Schizophrenia [Unknown]

NARRATIVE: CASE EVENT DATE: 20190803
